FAERS Safety Report 11151657 (Version 1)
Quarter: 2015Q2

REPORT INFORMATION
  Report Type: Spontaneous
  Country: CN (occurrence: CN)
  Receive Date: 20150601
  Receipt Date: 20150601
  Transmission Date: 20150821
  Serious: Yes (Other)
  Sender: FDA-Public Use
  Company Number: CN-BAXTER-2015BAX027869

PATIENT
  Age: 1 Year
  Sex: Female

DRUGS (3)
  1. 10% GLUCOSE  INJECTION [Suspect]
     Active Substance: DEXTROSE
     Indication: PHARYNGOTONSILLITIS
     Route: 041
     Dates: start: 20141112, end: 20141112
  2. NEW THALLINE [Suspect]
     Active Substance: CEFAZOLIN SODIUM
     Indication: PHARYNGOTONSILLITIS
     Route: 041
     Dates: start: 20141112, end: 20141112
  3. 10% GLUCOSE  INJECTION [Suspect]
     Active Substance: DEXTROSE
     Indication: OFF LABEL USE

REACTIONS (4)
  - Pruritus [Recovering/Resolving]
  - Off label use [None]
  - Rash [Recovering/Resolving]
  - Erythema [Recovering/Resolving]

NARRATIVE: CASE EVENT DATE: 20141112
